FAERS Safety Report 5495523-0 (Version None)
Quarter: 2007Q4

REPORT INFORMATION
  Report Type: 
  Country: None (occurrence: None)
  Receive Date: 20071024
  Receipt Date: 20071015
  Transmission Date: 20080405
  Serious: Yes (Hospitalization, Other)
  Sender: FDA-Public Use
  Company Number: JP-ABBOTT-07P-087-0378219-00

PATIENT
  Sex: Male

DRUGS (20)
  1. NORVIR [Suspect]
     Indication: HIV INFECTION
     Route: 048
     Dates: start: 20060606
  2. AZITHROMYCIN [Concomitant]
     Indication: OPPORTUNISTIC INFECTION PROPHYLAXIS
     Route: 048
     Dates: start: 20060401, end: 20060712
  3. CETIRIZINE HCL [Concomitant]
     Indication: EOSINOPHILIC PUSTULAR FOLLICULITIS
     Route: 048
     Dates: start: 20060401
  4. OLOPATADINE [Concomitant]
     Indication: EOSINOPHILIC PUSTULAR FOLLICULITIS
     Route: 048
     Dates: start: 20060401
  5. CLINDAMYCIN HCL [Concomitant]
     Indication: EOSINOPHILIC PUSTULAR FOLLICULITIS
     Dosage: ADEQUATE DOSE
     Route: 061
     Dates: start: 20060401
  6. LATANOPROST [Concomitant]
     Indication: UVEITIS
     Dosage: ADEQUATE DOSE
     Route: 057
     Dates: start: 20060401
  7. FLUNITRAZEPAM [Concomitant]
     Indication: INSOMNIA
     Route: 048
     Dates: start: 20060401, end: 20060702
  8. PENTAMIDINE ISETHIONATE [Concomitant]
     Indication: ANTIFUNGAL PROPHYLAXIS
     Route: 042
     Dates: start: 20060401, end: 20060628
  9. MILNACIPRAN HYDROCHLORIDE [Concomitant]
     Indication: DEPRESSION
     Route: 048
     Dates: start: 20060703
  10. NITRAZEPAM [Concomitant]
     Indication: DEPRESSION
     Route: 048
     Dates: start: 20060703
  11. HYALURONIDASE [Concomitant]
     Indication: POSTOPERATIVE CARE
     Dosage: ADEQUATE DOSE
     Route: 061
     Dates: start: 20060916
  12. CARTEOLOL HYDROCHLORIDE [Concomitant]
     Indication: POSTOPERATIVE CARE
     Dosage: ADEQUATE DOSE
     Route: 057
     Dates: start: 20061011
  13. DORZOLAMIDE HCL [Concomitant]
     Indication: POSTOPERATIVE CARE
     Dosage: ADEQUATE DOSE
     Route: 057
     Dates: start: 20061018
  14. L-ASPARTATE POTASSIUM [Concomitant]
     Indication: POSTOPERATIVE CARE
     Route: 048
     Dates: start: 20060927
  15. ACETAZOLAMIDE [Concomitant]
     Indication: POSTOPERATIVE CARE
     Route: 048
     Dates: start: 20060916
  16. EFAVIRENZ [Concomitant]
     Indication: HIV INFECTION
     Route: 048
     Dates: start: 20060401
  17. EMTRICITABINE W/TENOFOVIR [Concomitant]
     Indication: HIV INFECTION
     Route: 048
     Dates: start: 20060401, end: 20060605
  18. ATAZANAVIR SULFATE [Concomitant]
     Indication: HIV INFECTION
     Route: 048
     Dates: start: 20060606
  19. LOXOPROFEN SODIUM HYDRATE [Concomitant]
     Indication: POSTOPERATIVE CARE
     Dosage: 60-180MG
     Route: 048
     Dates: start: 20060927
  20. BETAMETHASONE SODIUM PHOSPHATE [Concomitant]
     Indication: UVEITIS
     Dosage: ADEQUATE DOSE
     Route: 057
     Dates: start: 20060401, end: 20060912

REACTIONS (2)
  - CATARACT [None]
  - RETINAL DETACHMENT [None]
